FAERS Safety Report 20310588 (Version 2)
Quarter: 2022Q1

REPORT INFORMATION
  Report Type: Spontaneous
  Country: US (occurrence: US)
  Receive Date: 20220107
  Receipt Date: 20220301
  Transmission Date: 20220423
  Serious: No
  Sender: FDA-Public Use
  Company Number: US-MYLANLABS-2022M1001400

PATIENT
  Age: 16 Year
  Sex: Male
  Weight: 72.57 kg

DRUGS (1)
  1. EPINEPHRINE [Suspect]
     Active Substance: EPINEPHRINE
     Indication: Food allergy
     Dosage: UNK

REACTIONS (2)
  - Product contamination physical [None]
  - Product quality issue [None]

NARRATIVE: CASE EVENT DATE: 20220102
